FAERS Safety Report 15432700 (Version 4)
Quarter: 2019Q1

REPORT INFORMATION
  Report Type: Report from Study
  Country: US (occurrence: US)
  Receive Date: 20180927
  Receipt Date: 20190205
  Transmission Date: 20190417
  Serious: Yes (Hospitalization, Other)
  Sender: FDA-Public Use
  Company Number: US-ROCHE-1955119

PATIENT
  Sex: Male
  Weight: 13.2 kg

DRUGS (43)
  1. OXACILLIN [Concomitant]
     Active Substance: OXACILLIN SODIUM
     Dosage: ONGOING:NO
     Route: 065
  2. BENEPROTEIN [Concomitant]
     Active Substance: DIETARY SUPPLEMENT
  3. FAMOTIDINE. [Concomitant]
     Active Substance: FAMOTIDINE
     Route: 048
  4. SODIUM POLYSTYRENE SULFONATE. [Concomitant]
     Active Substance: SODIUM POLYSTYRENE SULFONATE
     Dosage: DAILY
     Route: 048
  5. NUTROPIN AQ [Suspect]
     Active Substance: SOMATROPIN
     Indication: CHRONIC KIDNEY DISEASE
  6. BACTRIM [Concomitant]
     Active Substance: SULFAMETHOXAZOLE\TRIMETHOPRIM
  7. CITRIC ACID [Concomitant]
     Active Substance: CITRIC ACID MONOHYDRATE
     Route: 065
  8. SEVELAMER [Concomitant]
     Active Substance: SEVELAMER
     Dosage: DAILY
     Route: 048
  9. PROCRIT [Concomitant]
     Active Substance: ERYTHROPOIETIN
  10. ARANESP [Concomitant]
     Active Substance: DARBEPOETIN ALFA
     Route: 058
  11. MIDODRINE [Concomitant]
     Active Substance: MIDODRINE
     Indication: HYPOTENSION
     Route: 048
  12. SEVELAMER [Concomitant]
     Active Substance: SEVELAMER
     Route: 048
  13. LASIX [Concomitant]
     Active Substance: FUROSEMIDE
     Route: 048
  14. AZITHROMYCIN ANHYDROUS. [Concomitant]
     Active Substance: AZITHROMYCIN ANHYDROUS
     Dosage: 200 MG/5ML;DAILY
     Route: 048
  15. PYRIDOXINE [Concomitant]
     Active Substance: PYRIDOXINE
     Route: 048
  16. PARICALCITOL. [Concomitant]
     Active Substance: PARICALCITOL
     Route: 065
  17. BACITRACIN/POLYMYXIN [Concomitant]
     Active Substance: BACITRACIN ZINC\POLYMYXIN B SULFATE
     Route: 061
  18. SENSIPAR [Concomitant]
     Active Substance: CINACALCET HYDROCHLORIDE
     Route: 048
  19. CEFOTAXIME [Concomitant]
     Active Substance: CEFOTAXIME SODIUM
     Dosage: ONGOING:NO
     Route: 065
  20. SODIUM CHLORIDE. [Concomitant]
     Active Substance: SODIUM CHLORIDE
     Route: 048
  21. FOLIC ACID. [Concomitant]
     Active Substance: FOLIC ACID
     Route: 048
  22. FERROUS SULFATE. [Concomitant]
     Active Substance: FERROUS SULFATE
     Dosage: 15MG/ML;DAILY
     Route: 065
  23. CALCITRIOL. [Concomitant]
     Active Substance: CALCITRIOL
     Dosage: DAILY
     Route: 048
  24. AZITHROMYCIN ANHYDROUS. [Concomitant]
     Active Substance: AZITHROMYCIN ANHYDROUS
     Route: 048
  25. RANITIDINE. [Concomitant]
     Active Substance: RANITIDINE
     Route: 065
  26. SENSIPAR [Concomitant]
     Active Substance: CINACALCET HYDROCHLORIDE
     Route: 048
  27. NUTROPIN AQ [Suspect]
     Active Substance: SOMATROPIN
     Indication: CHRONIC KIDNEY DISEASE
     Dosage: NUSPIN 10, 0.1 MG DOSING INCREMENTS, 7 INJECTIONS PER WEEK, DISPENSED 1 MONTH SUPPLY AND REFILLED 6
     Route: 058
  28. OMEPRAZOLE. [Concomitant]
     Active Substance: OMEPRAZOLE
     Dosage: QPM
     Route: 048
  29. HEPARIN [Concomitant]
     Active Substance: HEPARIN SODIUM
     Route: 065
  30. LEVOCARNITINE. [Concomitant]
     Active Substance: LEVOCARNITINE
     Dosage: 100 MG/ML
     Route: 054
  31. SODIUM POLYSTYRENE SULFONATE. [Concomitant]
     Active Substance: SODIUM POLYSTYRENE SULFONATE
     Route: 065
  32. EPOGEN [Concomitant]
     Active Substance: ERYTHROPOIETIN
     Indication: ANAEMIA
     Dosage: ONGOING:NO
     Route: 058
  33. PARICALCITOL. [Concomitant]
     Active Substance: PARICALCITOL
     Dosage: DAILY
     Route: 048
  34. FUROSEMIDE. [Concomitant]
     Active Substance: FUROSEMIDE
     Route: 048
  35. LEVOCARNITINE. [Concomitant]
     Active Substance: LEVOCARNITINE
     Route: 065
  36. NUTROPIN AQ [Suspect]
     Active Substance: SOMATROPIN
     Indication: HYPOPITUITARISM
     Dosage: ONGOING, NUSPIN 10 MG,
     Route: 058
  37. MEDIUM CHAIN TRIGLYCERIDES [Concomitant]
     Dosage: DAILY
     Route: 048
  38. SODIUM CITRATE. [Concomitant]
     Active Substance: SODIUM CITRATE
     Route: 065
  39. ARANESP [Concomitant]
     Active Substance: DARBEPOETIN ALFA
     Route: 058
  40. MIDODRINE [Concomitant]
     Active Substance: MIDODRINE
     Dosage: AS REQUIRED
     Route: 065
  41. RANITIDINE. [Concomitant]
     Active Substance: RANITIDINE
     Route: 048
  42. SENSIPAR [Concomitant]
     Active Substance: CINACALCET HYDROCHLORIDE
     Route: 065
  43. ZANTAC [Concomitant]
     Active Substance: RANITIDINE HYDROCHLORIDE
     Route: 048

REACTIONS (48)
  - Upper respiratory tract infection [Unknown]
  - Pyrexia [Unknown]
  - Mean cell volume decreased [Unknown]
  - Iron deficiency anaemia [Unknown]
  - Hyperkalaemia [Unknown]
  - Blood potassium decreased [Unknown]
  - White blood cell count decreased [Unknown]
  - Iron binding capacity total decreased [Unknown]
  - Malnutrition [Unknown]
  - Hypernatraemia [Unknown]
  - Blood phosphorus decreased [Unknown]
  - Blood alkaline phosphatase increased [Unknown]
  - Red cell distribution width increased [Unknown]
  - Blood parathyroid hormone increased [Unknown]
  - Reticulocyte count decreased [Unknown]
  - Urine output decreased [Unknown]
  - Rash erythematous [Unknown]
  - Abdominal distension [Unknown]
  - Atypical pneumonia [Unknown]
  - Haemoglobin decreased [Unknown]
  - Haematocrit decreased [Unknown]
  - Blood urea increased [Unknown]
  - Blood creatinine increased [Unknown]
  - Weight gain poor [Unknown]
  - Reticulocyte count increased [Unknown]
  - Hypotension [Unknown]
  - Abdominal tenderness [Unknown]
  - Proteus infection [Unknown]
  - Productive cough [Unknown]
  - Blood osmolarity increased [Unknown]
  - Blood chloride decreased [Unknown]
  - Anion gap increased [Unknown]
  - Polyuria [Unknown]
  - Red blood cell count decreased [Unknown]
  - Sepsis [Unknown]
  - Blood iron increased [Unknown]
  - Blood albumin decreased [Unknown]
  - Hypercalcaemia [Unknown]
  - Blood osmolarity decreased [Unknown]
  - Tachycardia [Unknown]
  - Blood glucose increased [Unknown]
  - Rash pruritic [Unknown]
  - Blood sodium decreased [Unknown]
  - Carbon dioxide increased [Unknown]
  - Device malfunction [Unknown]
  - Platelet count increased [Unknown]
  - Lymphocyte count increased [Unknown]
  - Fertility increased [Unknown]
